FAERS Safety Report 16318158 (Version 3)
Quarter: 2019Q3

REPORT INFORMATION
  Report Type: Report from Study
  Country: None (occurrence: US)
  Receive Date: 20190516
  Receipt Date: 20190705
  Transmission Date: 20191004
  Serious: Yes (Hospitalization)
  Sender: FDA-Public Use
  Company Number: US-ABBVIE-19K-163-2781438-00

PATIENT
  Sex: Male
  Weight: 94.43 kg

DRUGS (4)
  1. VIVITROL [Concomitant]
     Active Substance: NALTREXONE
     Indication: DRUG DEPENDENCE
  2. MAVYRET [Suspect]
     Active Substance: GLECAPREVIR\PIBRENTASVIR
     Indication: HEPATITIS C
     Dosage: 100/40MG
     Route: 048
     Dates: end: 2019
  3. CLONAZEPAM. [Concomitant]
     Active Substance: CLONAZEPAM
     Indication: SLEEP DISORDER
  4. CLONAZEPAM. [Concomitant]
     Active Substance: CLONAZEPAM
     Indication: ANXIETY

REACTIONS (4)
  - Subcutaneous abscess [Recovering/Resolving]
  - Back pain [Recovered/Resolved]
  - Discomfort [Unknown]
  - Spinal cord infection [Recovering/Resolving]

NARRATIVE: CASE EVENT DATE: 2019
